FAERS Safety Report 7590006-6 (Version None)
Quarter: 2011Q3

REPORT INFORMATION
  Report Type: 
  Country: None (occurrence: None)
  Receive Date: 20110705
  Receipt Date: 20110613
  Transmission Date: 20111222
  Serious: Yes (Congenital Anomaly)
  Sender: FDA-Public Use
  Company Number: A0932209A

PATIENT
  Sex: Male
  Weight: 3.1 kg

DRUGS (1)
  1. PAXIL [Suspect]
     Indication: DEPRESSION
     Route: 064
     Dates: start: 19950101, end: 19990601

REACTIONS (4)
  - ATRIAL SEPTAL DEFECT [None]
  - MATERNAL EXPOSURE DURING PREGNANCY [None]
  - TRANSPOSITION OF THE GREAT VESSELS [None]
  - PATENT DUCTUS ARTERIOSUS [None]
